FAERS Safety Report 5515850-8 (Version None)
Quarter: 2007Q4

REPORT INFORMATION
  Report Type: 
  Country: None (occurrence: None)
  Receive Date: 20071114
  Receipt Date: 20071105
  Transmission Date: 20080405
  Serious: Yes (Hospitalization)
  Sender: FDA-Public Use
  Company Number: JP-BRISTOL-MYERS SQUIBB COMPANY-13979398

PATIENT
  Age: 34 Year
  Sex: Female

DRUGS (8)
  1. ARIPIPRAZOLE [Suspect]
     Indication: SCHIZOPHRENIA
     Dosage: 23JUL07 TO 30JUL07-6MG WAS GIVEN AND INCREASED TO 12MG FROM 31-JUL TO 01-OCT-2007
     Route: 048
     Dates: start: 20070723, end: 20071001
  2. MAGNESIUM OXIDE [Concomitant]
     Route: 048
  3. ZOLPIDEM TARTRATE [Concomitant]
     Route: 048
  4. FLUNITRAZEPAM [Concomitant]
     Route: 048
  5. LEVOMEPROMAZINE MALEATE [Concomitant]
     Route: 048
  6. SENNOSIDE [Concomitant]
     Route: 048
  7. RISPERIDONE [Concomitant]
     Indication: SCHIZOPHRENIA
     Route: 048
  8. BIPERIDEN HYDROCHLORIDE TAB [Concomitant]
     Route: 048

REACTIONS (2)
  - HALLUCINATION [None]
  - PARANOIA [None]
